FAERS Safety Report 13957122 (Version 1)
Quarter: 2017Q3

REPORT INFORMATION
  Report Type: Spontaneous
  Country: CN (occurrence: CN)
  Receive Date: 20170911
  Receipt Date: 20170911
  Transmission Date: 20171128
  Serious: Yes (Other)
  Sender: FDA-Public Use
  Company Number: CN-MYLANLABS-2017M1056132

PATIENT
  Age: 6 Decade
  Sex: Female

DRUGS (8)
  1. TAMOXIFEN [Suspect]
     Active Substance: TAMOXIFEN
     Indication: ANTIOESTROGEN THERAPY
     Dosage: 20 MG/DAY FOR 5 YEARS
     Route: 065
  2. CAPECITABINE. [Suspect]
     Active Substance: CAPECITABINE
     Indication: LUNG ADENOCARCINOMA
     Dosage: ON DAYS 1-14 EVERY THREE WEEKS FOR THREE CYCLES
     Route: 065
  3. CYCLOPHOSPHAMIDE. [Concomitant]
     Active Substance: CYCLOPHOSPHAMIDE
     Indication: ADJUVANT THERAPY
     Dosage: 500 MG/M2 EVERY THREE WEEKS OVER 18 WEEKS (6 CYCLES)
     Route: 065
  4. EPIRUBICIN [Concomitant]
     Active Substance: EPIRUBICIN
     Indication: ADJUVANT THERAPY
     Dosage: 100 MG/M2 EVERY THREE WEEKS OVER 18 WEEKS (6 CYCLES)
     Route: 065
  5. DOCETAXEL. [Concomitant]
     Active Substance: DOCETAXEL
     Indication: LUNG ADENOCARCINOMA
     Dosage: 75 MG /M2 ON DAY 1; EVERY 3 WEEKS FOR 3 CYCLES
     Route: 065
  6. TRASTUZUMAB. [Concomitant]
     Active Substance: TRASTUZUMAB
     Indication: LUNG ADENOCARCINOMA
     Dosage: 8 MG/KG LOADING DOSE; 6 MG/KG SUBSEQUENTLY EVERY 3 WEEKS FOR 3 CYCLES
     Route: 065
  7. TRASTUZUMAB. [Concomitant]
     Active Substance: TRASTUZUMAB
     Dosage: 6 MG/KG EVERY 3 WEEKS FOR 3 CYCLES
     Route: 065
  8. FLUOROURACIL. [Concomitant]
     Active Substance: FLUOROURACIL
     Indication: ADJUVANT THERAPY
     Dosage: 500 MG/M2 EVERY THREE WEEKS OVER 18 WEEKS (6 CYCLES)
     Route: 065

REACTIONS (2)
  - Drug resistance [Unknown]
  - Palmar-plantar erythrodysaesthesia syndrome [Unknown]
